FAERS Safety Report 6967240-9 (Version None)
Quarter: 2010Q3

REPORT INFORMATION
  Report Type: 
  Country: None (occurrence: None)
  Receive Date: 20100907
  Receipt Date: 20100824
  Transmission Date: 20110219
  Serious: Yes (Hospitalization, Other)
  Sender: FDA-Public Use
  Company Number: US-ELI_LILLY_AND_COMPANY-US201006006379

PATIENT
  Sex: Female

DRUGS (10)
  1. FORTEO [Suspect]
     Indication: OSTEOPOROSIS
     Dosage: 20 UG, DAILY (1/D)
  2. ANTIHYPERTENSIVES [Concomitant]
  3. DIURETICS [Concomitant]
  4. VITAMIN TAB [Concomitant]
  5. FISH OIL [Concomitant]
  6. CALCIUM [Concomitant]
  7. VITAMIN D [Concomitant]
  8. MINERALS NOS [Concomitant]
  9. ASPIRIN [Concomitant]
  10. REMERON [Concomitant]

REACTIONS (9)
  - DIZZINESS [None]
  - EAR INFECTION [None]
  - EAR PAIN [None]
  - FALL [None]
  - HEADACHE [None]
  - HYPOACUSIS [None]
  - OTITIS MEDIA ACUTE [None]
  - SPINAL FRACTURE [None]
  - UPPER LIMB FRACTURE [None]
